FAERS Safety Report 6554879-8 (Version None)
Quarter: 2010Q1

REPORT INFORMATION
  Report Type: 
  Country: None (occurrence: None)
  Receive Date: 20100125
  Receipt Date: 20100115
  Transmission Date: 20100710
  Serious: Yes (Death)
  Sender: FDA-Public Use
  Company Number: 2010AC000073

PATIENT
  Sex: Female

DRUGS (1)
  1. DIGOXIN [Suspect]

REACTIONS (3)
  - ECONOMIC PROBLEM [None]
  - INJURY [None]
  - SURGERY [None]
